FAERS Safety Report 6197380-6 (Version None)
Quarter: 2009Q2

REPORT INFORMATION
  Report Type: 
  Country: None (occurrence: None)
  Receive Date: 20090518
  Receipt Date: 20090513
  Transmission Date: 20091009
  Serious: Yes (Death)
  Sender: FDA-Public Use
  Company Number: 2009SP010236

PATIENT
  Age: 55 Year
  Sex: Male

DRUGS (2)
  1. TEMODAR [Suspect]
     Indication: EYE DISORDER
     Dosage: PO
     Route: 048
  2. TEMODAR [Suspect]
     Indication: PEMPHIGUS
     Dosage: PO
     Route: 048

REACTIONS (1)
  - DEATH [None]
